FAERS Safety Report 7124508-3 (Version None)
Quarter: 2010Q4

REPORT INFORMATION
  Report Type: 
  Country: None (occurrence: None)
  Receive Date: 20101128
  Receipt Date: 20101118
  Transmission Date: 20110411
  Serious: Yes (Hospitalization)
  Sender: FDA-Public Use
  Company Number: US-AMGEN-USASP2010005688

PATIENT

DRUGS (3)
  1. ENBREL [Suspect]
     Indication: PSORIASIS
     Dosage: 50 MG, 2 TIMES/WK
     Dates: start: 19990101, end: 20070101
  2. ENBREL [Suspect]
     Dosage: 50 MG, 2 TIMES/WK
     Route: 058
  3. BETAMETHASONE VALERATE [Concomitant]
     Indication: PSORIASIS
     Route: 061

REACTIONS (3)
  - CEPHALO-PELVIC DISPROPORTION [None]
  - INJECTION SITE HAEMORRHAGE [None]
  - PSORIASIS [None]
